FAERS Safety Report 8224250-1 (Version None)
Quarter: 2012Q1

REPORT INFORMATION
  Report Type: 
  Country: None (occurrence: None)
  Receive Date: 20120321
  Receipt Date: 20120308
  Transmission Date: 20120608
  Serious: Yes (Hospitalization, Other)
  Sender: FDA-Public Use
  Company Number: PHEH2012US005157

PATIENT
  Age: 64 Year
  Sex: Female
  Weight: 68.934 kg

DRUGS (6)
  1. TASIGNA [Suspect]
     Dosage: 300 MG, Q12H
     Route: 048
  2. NEXIUM [Concomitant]
  3. CARAFATE [Concomitant]
  4. TRICOR [Concomitant]
  5. REGLAN [Concomitant]
  6. OMEPRAZOLE [Concomitant]

REACTIONS (5)
  - PALPITATIONS [None]
  - DYSPNOEA [None]
  - CHEST PAIN [None]
  - HEADACHE [None]
  - VENTRICULAR EXTRASYSTOLES [None]
